FAERS Safety Report 25826887 (Version 2)
Quarter: 2025Q4

REPORT INFORMATION
  Report Type: Spontaneous
  Country: JP (occurrence: JP)
  Receive Date: 20250920
  Receipt Date: 20251106
  Transmission Date: 20260118
  Serious: Yes (Other)
  Sender: UCB
  Company Number: JP-UCBJ-CD202512104UCBPHAPROD

PATIENT
  Age: 20 Year

DRUGS (5)
  1. FINTEPLA [Suspect]
     Active Substance: FENFLURAMINE
     Indication: Lennox-Gastaut syndrome
     Dosage: 10 MILLILITER, ONCE DAILY (QD)
  2. FINTEPLA [Suspect]
     Active Substance: FENFLURAMINE
     Dosage: 8 MILLILITER, ONCE DAILY (QD)
  3. INOVELON [Concomitant]
     Active Substance: RUFINAMIDE
     Indication: Lennox-Gastaut syndrome
     Dosage: 1 TAB
  4. INOVELON [Concomitant]
     Active Substance: RUFINAMIDE
     Dosage: 1 TAB
  5. INOVELON [Concomitant]
     Active Substance: RUFINAMIDE
     Dosage: 1 TAB

REACTIONS (1)
  - Epilepsy [Unknown]
